FAERS Safety Report 5293131-8 (Version None)
Quarter: 2007Q2

REPORT INFORMATION
  Report Type: 
  Country: None (occurrence: None)
  Receive Date: 20070411
  Receipt Date: 20070330
  Transmission Date: 20071010
  Serious: Yes (Life-Threatening)
  Sender: FDA-Public Use
  Company Number: JP-BRISTOL-MYERS SQUIBB COMPANY-13742200

PATIENT
  Age: 3 Decade
  Sex: Female

DRUGS (6)
  1. EFAVIRENZ [Suspect]
     Indication: HIV INFECTION
     Route: 048
     Dates: start: 20060220
  2. DIFLUCAN [Suspect]
     Route: 048
     Dates: start: 20060210, end: 20060920
  3. AMBISOME [Suspect]
     Route: 042
     Dates: start: 20060921, end: 20060927
  4. FLUCYTOSINE [Suspect]
     Route: 048
     Dates: start: 20060921, end: 20061002
  5. TRUVADA [Suspect]
     Indication: HIV INFECTION
     Route: 048
     Dates: start: 20060220
  6. BAKTAR [Suspect]
     Route: 048
     Dates: start: 20060101

REACTIONS (1)
  - BRAIN HERNIATION [None]
